FAERS Safety Report 16791089 (Version 1)
Quarter: 2019Q3

REPORT INFORMATION
  Report Type: Spontaneous
  Country: US (occurrence: US)
  Receive Date: 20190812
  Receipt Date: 20190812
  Transmission Date: 20191005
  Serious: Yes (Hospitalization)
  Sender: FDA-Public Use
  Company Number: None

PATIENT
  Age: 62 Year
  Sex: Male

DRUGS (2)
  1. VARICELLA-ZOSTER VACCINE NOS [Suspect]
     Active Substance: VARICELLA-ZOSTER VACCINE
     Indication: IMMUNISATION
     Dosage: ?          OTHER DOSE:0.5 ML;?
     Route: 041
     Dates: start: 20180827, end: 20180827
  2. ATORVASTATIN [Suspect]
     Active Substance: ATORVASTATIN
     Indication: HYPERLIPIDAEMIA
     Route: 048
     Dates: start: 20160427, end: 20181019

REACTIONS (6)
  - Myalgia [None]
  - Muscle necrosis [None]
  - Hepatic enzyme increased [None]
  - Fall [None]
  - Muscular weakness [None]
  - Balance disorder [None]

NARRATIVE: CASE EVENT DATE: 20180827
